FAERS Safety Report 24764991 (Version 1)
Quarter: 2024Q4

REPORT INFORMATION
  Report Type: Spontaneous
  Country: IN (occurrence: IN)
  Receive Date: 20241223
  Receipt Date: 20241223
  Transmission Date: 20250115
  Serious: Yes (Disabling)
  Sender: MACLEODS
  Company Number: IN-MLMSERVICE-20241209-PI285422-00246-1

PATIENT

DRUGS (1)
  1. OLANZAPINE [Suspect]
     Active Substance: OLANZAPINE
     Indication: Antipsychotic therapy
     Route: 065

REACTIONS (1)
  - Tardive dyskinesia [Recovering/Resolving]
